FAERS Safety Report 13337834 (Version 1)
Quarter: 2017Q1

REPORT INFORMATION
  Report Type: Not Available
  Country: None (occurrence: US)
  Receive Date: 20170315
  Receipt Date: 20170315
  Transmission Date: 20170509
  Serious: No
  Sender: FDA-Public Use
  Company Number: US-AKORN-22651

PATIENT
  Age: 68 Year
  Sex: Female

DRUGS (1)
  1. FLUTICASONE PROPIONATE NASAL SPRAY [Suspect]
     Active Substance: FLUTICASONE PROPIONATE

REACTIONS (5)
  - Generalised anxiety disorder [None]
  - Nervousness [None]
  - Decreased appetite [None]
  - Panic attack [None]
  - Tinnitus [None]
